FAERS Safety Report 15849832 (Version 3)
Quarter: 2019Q2

REPORT INFORMATION
  Report Type: Report from Study
  Country: US (occurrence: US)
  Receive Date: 20190121
  Receipt Date: 20190408
  Transmission Date: 20190711
  Serious: No
  Sender: FDA-Public Use
  Company Number: PHEH2019US002486

PATIENT
  Sex: Female

DRUGS (1)
  1. PAZEO [Suspect]
     Active Substance: OLOPATADINE HYDROCHLORIDE
     Indication: PRODUCT USED FOR UNKNOWN INDICATION
     Route: 065

REACTIONS (7)
  - Ocular hyperaemia [Unknown]
  - Hypersensitivity [Unknown]
  - Eye irritation [Unknown]
  - Eye pruritus [Unknown]
  - Allergy to plants [Unknown]
  - Seasonal allergy [Unknown]
  - Crying [Unknown]
